FAERS Safety Report 17665000 (Version 1)
Quarter: 2020Q2

REPORT INFORMATION
  Report Type: Spontaneous
  Country: US (occurrence: US)
  Receive Date: 20200413
  Receipt Date: 20200413
  Transmission Date: 20200713
  Serious: No
  Sender: FDA-Public Use
  Company Number: None

PATIENT
  Age: 76 Year
  Sex: Female
  Weight: 62.96 kg

DRUGS (18)
  1. IBRANCE [Suspect]
     Active Substance: PALBOCICLIB
     Indication: BREAST CANCER
     Route: 048
     Dates: start: 20191122, end: 20200413
  2. LETROZOLE. [Suspect]
     Active Substance: LETROZOLE
     Indication: BREAST CANCER
     Route: 048
     Dates: start: 20191122, end: 20200413
  3. MAGNESIUM 250MG, ORAL [Concomitant]
  4. PROPRANOLOL 80MG, ORAL [Concomitant]
  5. ALBUTEROL 108 MCG, ORAL [Concomitant]
  6. CALCIUM 600 (1500MG) , ORAL [Concomitant]
  7. INDERAL LA 120MG,ORAL [Concomitant]
  8. LEVOTHYROXINE, 75 MCG, ORAL [Concomitant]
  9. AMITRIPTYLINE 10MG ,ORAL [Concomitant]
  10. VITAMIN B12 100 MCG, ORAL [Concomitant]
  11. PANTOPRAZOLE 40MG, ORAL [Concomitant]
  12. VITAMIN B1, ORAL [Concomitant]
  13. CINNAMON 500MG, ORAL [Concomitant]
  14. ELIQUIS, 5MG, ORAL [Concomitant]
  15. ULTRAM 50MG, ORAL [Concomitant]
  16. VITAMIN B3 [Concomitant]
     Active Substance: NIACIN
  17. FIORICET, 50-300-40, ORAL [Concomitant]
  18. VITAMIN D, ORAL [Concomitant]

REACTIONS (1)
  - Death [None]

NARRATIVE: CASE EVENT DATE: 20200413
